FAERS Safety Report 21049459 (Version 1)
Quarter: 2022Q3

REPORT INFORMATION
  Report Type: Spontaneous
  Country: US (occurrence: None)
  Receive Date: 20220706
  Receipt Date: 20220706
  Transmission Date: 20221027
  Serious: Yes (Other)
  Sender: FDA-Public Use
  Company Number: 2022A242352

PATIENT
  Age: 55 Year
  Sex: Male

DRUGS (1)
  1. DURVALUMAB [Suspect]
     Active Substance: DURVALUMAB
     Indication: Non-small cell lung cancer
     Dosage: 10 MG/KG OF BODY WEIGHT EVERY 2 WEEKS FOR 12 MONTHS.
     Route: 058

REACTIONS (2)
  - Nephrotic syndrome [Unknown]
  - Generalised oedema [Unknown]
